FAERS Safety Report 5282894-3 (Version None)
Quarter: 2007Q2

REPORT INFORMATION
  Report Type: 
  Country: None (occurrence: None)
  Receive Date: 20070402
  Receipt Date: 20070320
  Transmission Date: 20071010
  Serious: Yes (Hospitalization, Other)
  Sender: FDA-Public Use
  Company Number: PHNU2007DE00917

PATIENT
  Age: 86 Year
  Sex: Female
  Weight: 70 kg

DRUGS (8)
  1. DIOVAN [Suspect]
     Dosage: 40 MG, BID
     Route: 048
     Dates: start: 20070208, end: 20070212
  2. DIOVAN [Suspect]
     Dosage: 40 MG, QD
     Route: 048
     Dates: start: 20070213
  3. ISOPTIN [Concomitant]
     Indication: TACHYCARDIA PAROXYSMAL
     Dosage: UNK, PRN
     Dates: end: 20070201
  4. TAMBOCOR [Concomitant]
     Indication: TACHYCARDIA PAROXYSMAL
  5. LEVOTHYROXINE SODIUM [Suspect]
     Indication: AUTOIMMUNE THYROIDITIS
     Dosage: 25 UG/D
  6. DICLOFENAC SODIUM [Suspect]
     Indication: LIGAMENT RUPTURE
  7. ACETYLSALICYLIC ACID SRT [Concomitant]
  8. LEXOTANIL [Suspect]
     Dosage: 0.25 DF, UNK
     Route: 048

REACTIONS (4)
  - BLOOD PRESSURE DECREASED [None]
  - BRADYCARDIA [None]
  - HYPOTENSION [None]
  - TACHYCARDIA PAROXYSMAL [None]
